FAERS Safety Report 24925024 (Version 2)
Quarter: 2025Q1

REPORT INFORMATION
  Report Type: Report from Study
  Country: US (occurrence: US)
  Receive Date: 20250204
  Receipt Date: 20250214
  Transmission Date: 20250408
  Serious: Yes (Other)
  Sender: ABBVIE
  Company Number: US-ABBVIE-6110137

PATIENT
  Age: 75 Year
  Sex: Female
  Weight: 81.646 kg

DRUGS (9)
  1. SKYRIZI [Suspect]
     Active Substance: RISANKIZUMAB-RZAA
     Indication: Crohn^s disease
     Route: 058
     Dates: start: 20221229, end: 202407
  2. ROSUVASTATIN [Concomitant]
     Active Substance: ROSUVASTATIN
     Indication: Cardiac disorder
  3. DULOXETINE [Concomitant]
     Active Substance: DULOXETINE
     Indication: Crohn^s disease
  4. ASPIRIN [Concomitant]
     Active Substance: ASPIRIN
     Indication: Cardiac disorder
  5. D MANNOSE [Concomitant]
     Indication: Urinary tract infection
  6. PANTOPRAZOLE [Concomitant]
     Active Substance: PANTOPRAZOLE
     Indication: Cardiac disorder
  7. METHENAMINE [Concomitant]
     Active Substance: METHENAMINE
     Indication: Crohn^s disease
  8. GABAPENTIN AN [Concomitant]
     Indication: Pain
  9. LEVOTHYROXINE [Concomitant]
     Active Substance: LEVOTHYROXINE
     Indication: Hypothyroidism

REACTIONS (4)
  - Eye operation [Unknown]
  - Visual impairment [Unknown]
  - COVID-19 [Unknown]
  - Vertigo [Not Recovered/Not Resolved]

NARRATIVE: CASE EVENT DATE: 20230101
